FAERS Safety Report 7648781-8 (Version None)
Quarter: 2011Q3

REPORT INFORMATION
  Report Type: 
  Country: None (occurrence: None)
  Receive Date: 20110801
  Receipt Date: 20110727
  Transmission Date: 20111222
  Serious: Yes (Death)
  Sender: FDA-Public Use
  Company Number: PHHY2011US67818

PATIENT
  Sex: Male
  Weight: 66.213 kg

DRUGS (7)
  1. EXJADE [Suspect]
     Indication: ACUTE MYELOID LEUKAEMIA
     Dosage: 1250 MG, DAILY
     Route: 048
     Dates: start: 20100308
  2. CARDIZEM [Concomitant]
     Dosage: UNK UKN, UNK
  3. AVELOX [Concomitant]
     Dosage: UNK UKN, UNK
  4. AVAPRO [Concomitant]
     Dosage: UNK UKN, UNK
  5. ATENOLOL [Concomitant]
     Dosage: UNK UKN, UNK
  6. PROTONIX [Concomitant]
     Dosage: UNK UKN, UNK
  7. DIFLUCAN [Concomitant]

REACTIONS (1)
  - DEATH [None]
